FAERS Safety Report 24533527 (Version 2)
Quarter: 2024Q4

REPORT INFORMATION
  Report Type: Spontaneous
  Country: MX (occurrence: MX)
  Receive Date: 20241022
  Receipt Date: 20241028
  Transmission Date: 20250115
  Serious: Yes (Disabling)
  Sender: ROCHE
  Company Number: MX-ROCHE-10000109935

PATIENT
  Age: 53 Year
  Sex: Female
  Weight: 60 kg

DRUGS (4)
  1. OCREVUS [Suspect]
     Active Substance: OCRELIZUMAB
     Indication: Multiple sclerosis
     Route: 042
     Dates: start: 202408
  2. BACLOFEN [Concomitant]
     Active Substance: BACLOFEN
     Indication: Product used for unknown indication
  3. LYRICA [Concomitant]
     Active Substance: PREGABALIN
     Indication: Product used for unknown indication
  4. DIPHENIDOL [Concomitant]
     Active Substance: DIPHENIDOL
     Indication: Product used for unknown indication
     Dosage: DOSE AND FREQUENCY WERE NOT REPORTED

REACTIONS (5)
  - Pain in extremity [Not Recovered/Not Resolved]
  - Gait inability [Not Recovered/Not Resolved]
  - Muscular weakness [Unknown]
  - Burning sensation [Unknown]
  - Back pain [Recovered/Resolved]

NARRATIVE: CASE EVENT DATE: 20240901
